FAERS Safety Report 9462889 (Version 2)
Quarter: 2013Q3

REPORT INFORMATION
  Report Type: Spontaneous
  Country: FR (occurrence: None)
  Receive Date: 20130814
  Receipt Date: 20130916
  Transmission Date: 20140515
  Serious: Yes (Hospitalization)
  Sender: FDA-Public Use
  Company Number: 1837544

PATIENT
  Age: 73 Year
  Sex: Female

DRUGS (20)
  1. VINCRISTINE SULFATE [Suspect]
     Indication: HIGH GRADE B-CELL LYMPHOMA BURKITT-LIKE LYMPHOMA
     Dosage: 1.7 MG MILLIGRAMS (UNKNOWN), INTRAVENOUS (NOT OTHERWISE SPECIFIED)?
     Route: 042
     Dates: end: 20130530
  2. ENDOXAN [Suspect]
     Indication: HIGH GRADE B-CELL LYMPHOMA BURKITT-LIKE LYMPHOMA
     Dosage: 750 MG/M 2 MILLIGRAM/SQ. METER (UNKNOWN)?
     Dates: end: 20130530
  3. DOXORUBICINE [Suspect]
     Indication: HIGH GRADE B-CELL LYMPHOMA BURKITT-LIKE LYMPHOMA
     Dosage: INTRAVENOUS (NOT OTHERWISE SPECIFIED)?
     Route: 042
     Dates: end: 20130531
  4. PREDNISONE [Suspect]
     Indication: HIGH GRADE B-CELL LYMPHOMA BURKITT-LIKE LYMPHOMA
     Route: 048
  5. MABTHERA [Suspect]
     Indication: HIGH GRADE B-CELL LYMPHOMA BURKITT-LIKE LYMPHOMA
     Dosage: UNKNOWN ( TOTAL ), INTRAVENOUS (NOT OTHERWISE SPECIFIED)?
     Route: 042
     Dates: end: 20130530
  6. TRIATEC /00885601/ [Concomitant]
  7. FUNGIZONE [Concomitant]
  8. IMOVANE [Concomitant]
  9. XANAX [Concomitant]
  10. PRIMPERAN [Concomitant]
  11. FORLAX [Concomitant]
  12. DAFALGAN [Concomitant]
  13. ATARAX [Concomitant]
  14. CYMBALTA [Concomitant]
  15. MOTILIUM [Concomitant]
  16. OXYCONTIN [Concomitant]
  17. OXYCODONE [Concomitant]
  18. LEVOTHYROX [Concomitant]
  19. DIFFU K [Concomitant]
  20. GRANOCYTE [Concomitant]

REACTIONS (11)
  - Neutropenia [None]
  - Lymphopenia [None]
  - Normochromic normocytic anaemia [None]
  - Thrombocytopenia [None]
  - Fall [None]
  - Tachycardia [None]
  - Hypotension [None]
  - Discomfort [None]
  - Leukopenia [None]
  - Haematotoxicity [None]
  - Cardiac arrest [None]
